FAERS Safety Report 14586235 (Version 1)
Quarter: 2018Q1

REPORT INFORMATION
  Report Type: Spontaneous
  Country: FR (occurrence: FR)
  Receive Date: 20180301
  Receipt Date: 20180301
  Transmission Date: 20180509
  Serious: Yes (Life-Threatening, Hospitalization)
  Sender: FDA-Public Use
  Company Number: FR-AUROBINDO-AUR-APL-2018-010018

PATIENT
  Age: 63 Year
  Sex: Male

DRUGS (9)
  1. AMOXICILLIN. [Suspect]
     Active Substance: AMOXICILLIN
     Indication: BRONCHITIS
     Dosage: IN TOTAL
     Route: 048
     Dates: start: 20151023
  2. GANFORT [Concomitant]
     Active Substance: BIMATOPROST\TIMOLOL
     Dosage: ()
     Route: 047
  3. KARDEGIC [Concomitant]
     Active Substance: ASPIRIN DL-LYSINE
     Dosage: ()
     Route: 048
  4. LODALES [Concomitant]
     Active Substance: SIMVASTATIN
     Dosage: ()
     Route: 048
  5. TRAMADOL. [Concomitant]
     Active Substance: TRAMADOL
     Dosage: ()
     Route: 048
  6. METFORMINE [Concomitant]
     Active Substance: METFORMIN HYDROCHLORIDE
     Dosage: ()
     Route: 048
  7. LERCAPRESS [Concomitant]
     Active Substance: ENALAPRIL MALEATE\LERCANIDIPINE HYDROCHLORIDE
     Dosage: ()
     Route: 048
  8. NORDAZ [Concomitant]
     Active Substance: NORDAZEPAM
     Dosage: ()
     Route: 048
  9. SERETIDE [Concomitant]
     Active Substance: FLUTICASONE PROPIONATE\SALMETEROL XINAFOATE
     Dosage: ()
     Route: 055

REACTIONS (5)
  - Dysphonia [Recovered/Resolved]
  - Urticaria [Recovered/Resolved]
  - Respiratory tract oedema [Recovered/Resolved]
  - Face oedema [Recovered/Resolved]
  - Respiratory distress [Recovered/Resolved]

NARRATIVE: CASE EVENT DATE: 20151023
